FAERS Safety Report 5543811-1 (Version None)
Quarter: 2007Q4

REPORT INFORMATION
  Report Type: 
  Country: None (occurrence: None)
  Receive Date: 20071210
  Receipt Date: 20071206
  Transmission Date: 20080405
  Serious: No
  Sender: FDA-Public Use
  Company Number: US-BOEHRINGER INGELHEIM PHARMACEUTICALS, INC.-2007-BP-23211BP

PATIENT
  Sex: Male

DRUGS (3)
  1. FLOMAX [Suspect]
     Indication: BENIGN PROSTATIC HYPERPLASIA
     Route: 048
     Dates: start: 20050101
  2. LESCOL [Suspect]
     Indication: BLOOD CHOLESTEROL
  3. ONE A DAY VITAMIN [Concomitant]
     Indication: ROUTINE HEALTH MAINTENANCE

REACTIONS (5)
  - DRUG EFFECT DECREASED [None]
  - DRUG INTERACTION [None]
  - FLUSHING [None]
  - FOLATE DEFICIENCY [None]
  - HYPERSENSITIVITY [None]
